FAERS Safety Report 7073479-7 (Version None)
Quarter: 2010Q4

REPORT INFORMATION
  Report Type: 
  Country: None (occurrence: None)
  Receive Date: 20101028
  Receipt Date: 20101028
  Transmission Date: 20110411
  Serious: Yes (Other)
  Sender: FDA-Public Use
  Company Number: None

PATIENT
  Age: 41 Year
  Sex: Female
  Weight: 95.2554 kg

DRUGS (2)
  1. TRAMADOL HCL [Suspect]
     Indication: PAIN
     Dosage: 100MG 4X/DAY PO OVER A YEAR OFF AND ON
     Route: 048
     Dates: start: 20100110, end: 20100324
  2. CELEXA [Suspect]
     Indication: DEPRESSION
     Dosage: 60MG 1X/DAY PO
     Route: 048
     Dates: start: 20041124, end: 20091027

REACTIONS (3)
  - FALL [None]
  - GRAND MAL CONVULSION [None]
  - HEAD INJURY [None]
